FAERS Safety Report 6614979-0 (Version None)
Quarter: 2010Q1

REPORT INFORMATION
  Report Type: 
  Country: None (occurrence: None)
  Receive Date: 20100226
  Receipt Date: 20100217
  Transmission Date: 20100710
  Serious: Yes (Hospitalization)
  Sender: FDA-Public Use
  Company Number: LTI2010A00036

PATIENT
  Age: 61 Year
  Sex: Male

DRUGS (6)
  1. ACTOS [Suspect]
     Indication: TYPE 2 DIABETES MELLITUS
     Dosage: 30 MG (30 MG, 1 IN 1 D) ORAL
     Route: 048
     Dates: start: 20060101
  2. AMLODIPINE [Concomitant]
  3. NEBILOX (NEBIVOLOL HYDROCHLORIDE) [Concomitant]
  4. CRESTOR [Concomitant]
  5. IRBESARTAN [Concomitant]
  6. METFORMIN HCL [Concomitant]

REACTIONS (2)
  - RETINAL DETACHMENT [None]
  - RETINAL HAEMORRHAGE [None]
